FAERS Safety Report 9548147 (Version 4)
Quarter: 2015Q3

REPORT INFORMATION
  Report Type: Report from Study
  Country: CN (occurrence: CN)
  Receive Date: 20130924
  Receipt Date: 20150814
  Transmission Date: 20151125
  Serious: Yes (Hospitalization)
  Sender: FDA-Public Use
  Company Number: PHHY2012CN045643

PATIENT
  Age: 30 Year
  Sex: Male
  Weight: 62 kg

DRUGS (3)
  1. MYCOPHENOLIC ACID. [Suspect]
     Active Substance: MYCOPHENOLIC ACID
     Indication: RENAL TRANSPLANT
     Dosage: 1000 MG, UNK
     Route: 048
     Dates: start: 20120427
  2. MYCOPHENOLIC ACID. [Suspect]
     Active Substance: MYCOPHENOLIC ACID
     Indication: PROPHYLAXIS AGAINST TRANSPLANT REJECTION
     Dosage: 1080 MG, QD
     Route: 048
     Dates: start: 20120426
  3. TACROLIMUS. [Concomitant]
     Active Substance: TACROLIMUS
     Indication: PROPHYLAXIS AGAINST TRANSPLANT REJECTION
     Dosage: 4 MG, BID
     Route: 065

REACTIONS (6)
  - Pneumonia [Unknown]
  - Gastrointestinal haemorrhage [Unknown]
  - Urethritis [Recovered/Resolved]
  - Melaena [Recovered/Resolved]
  - Pyrexia [Unknown]
  - Cystitis glandularis [Recovered/Resolved]

NARRATIVE: CASE EVENT DATE: 20120516
